FAERS Safety Report 11713993 (Version 1)
Quarter: 2015Q4

REPORT INFORMATION
  Report Type: Spontaneous
  Country: US (occurrence: US)
  Receive Date: 20151109
  Receipt Date: 20151109
  Transmission Date: 20160304
  Serious: Yes (Other)
  Sender: FDA-Public Use
  Company Number: US-JNJFOC-20151100766

PATIENT
  Sex: Male

DRUGS (1)
  1. RISPERDAL [Suspect]
     Active Substance: RISPERIDONE
     Indication: BIPOLAR DISORDER
     Route: 048
     Dates: start: 2010

REACTIONS (6)
  - Obesity [Unknown]
  - Hypercholesterolaemia [Unknown]
  - Mastitis [Unknown]
  - Gynaecomastia [Unknown]
  - Diabetes mellitus [Unknown]
  - Blood prolactin increased [Unknown]
